FAERS Safety Report 23784555 (Version 3)
Quarter: 2024Q3

REPORT INFORMATION
  Report Type: Spontaneous
  Country: DE (occurrence: DE)
  Receive Date: 20240425
  Receipt Date: 20240731
  Transmission Date: 20241016
  Serious: Yes (Life-Threatening, Other)
  Sender: NOVARTIS
  Company Number: DE-002147023-NVSC2024DE086251

PATIENT
  Age: 25 Year
  Sex: Male
  Weight: 80 kg

DRUGS (14)
  1. KYMRIAH [Suspect]
     Active Substance: TISAGENLECLEUCEL
     Indication: Acute lymphocytic leukaemia
     Dosage: UNK, ONCE/SINGLE (INFUSION BAG (2.6 X 108 CAR-T CELLS))
     Route: 042
     Dates: start: 20230613, end: 20230613
  2. SULFAMETHOXAZOLE\TRIMETHOPRIM [Concomitant]
     Active Substance: SULFAMETHOXAZOLE\TRIMETHOPRIM
     Indication: Product used for unknown indication
     Dosage: UNK (1 ? 0 ? 0 ? 0 (MONDAYS/WEDNESDAYS/FRIDAYS))
     Route: 065
  3. CHOLECALCIFEROL [Concomitant]
     Active Substance: CHOLECALCIFEROL
     Indication: Product used for unknown indication
     Dosage: UNK (1 ? 0 ? 0 ? 0 (ONCE WEEKLY), (20000 I.E. WEICHKAPSELN)
     Route: 065
  4. VALACYCLOVIR HYDROCHLORIDE [Concomitant]
     Active Substance: VALACYCLOVIR HYDROCHLORIDE
     Indication: Product used for unknown indication
     Dosage: UNK (1 ? 0 ? 1 ? 0)
     Route: 065
  5. MAGNESIUM OXIDE [Concomitant]
     Active Substance: MAGNESIUM OXIDE
     Indication: Product used for unknown indication
     Dosage: UNK (1 ? 0 ? 0 ? 0)
     Route: 065
  6. CALCIUM [Concomitant]
     Active Substance: CALCIUM
     Indication: Product used for unknown indication
     Dosage: UNK (500 DURA, 1 ? 0 ? 1 ? 0 )
     Route: 065
  7. NOXAFIL [Concomitant]
     Active Substance: POSACONAZOLE
     Indication: Product used for unknown indication
     Dosage: UNK (3 ? 0 ? 0 ? 0 )
     Route: 065
  8. PARACETAMOL-RATIOPHARM [Concomitant]
     Indication: Product used for unknown indication
     Dosage: UNK (1 ? 1 ? 1 ? 1)
     Route: 065
  9. ALLOPURINOL [Concomitant]
     Active Substance: ALLOPURINOL
     Indication: Product used for unknown indication
     Dosage: UNK (1 ? 0 ? 0 ? 0)
     Route: 065
  10. LINEZOLID [Concomitant]
     Active Substance: LINEZOLID
     Indication: Product used for unknown indication
     Dosage: UNK (1 ? 0 ? 1 ? 0)
     Route: 065
     Dates: start: 20230708
  11. AMOXICILLIN\CLAVULANIC ACID [Concomitant]
     Active Substance: AMOXICILLIN\CLAVULANIC ACID
     Indication: Product used for unknown indication
     Dosage: UNK (1 ? 0 ? 1 ? 0)
     Route: 065
     Dates: start: 20230706
  12. CYKLOKAPRON [Concomitant]
     Active Substance: TRANEXAMIC ACID
     Indication: Product used for unknown indication
     Dosage: UNK (1 ? 1 ? 1 ? 0 )
     Route: 065
  13. SCHWEDENBITTER [Concomitant]
     Indication: Product used for unknown indication
     Dosage: UNK (1 ? 0 ? 1 ? 0), (0.25)
     Route: 065
  14. FILGRASTIM [Concomitant]
     Active Substance: FILGRASTIM
     Indication: Product used for unknown indication
     Dosage: UNK (SOLUTION FOR INFUSION IN PRE-FILLED SYRINGE, 0 ? 0 ? 1 ? 0)
     Route: 065

REACTIONS (2)
  - Acute lymphocytic leukaemia recurrent [Not Recovered/Not Resolved]
  - Out of specification test results [Unknown]

NARRATIVE: CASE EVENT DATE: 20230613
